FAERS Safety Report 9729202 (Version 3)
Quarter: 2014Q1

REPORT INFORMATION
  Report Type: Spontaneous
  Country: US (occurrence: US)
  Receive Date: 20131204
  Receipt Date: 20140124
  Transmission Date: 20141002
  Serious: No
  Sender: FDA-Public Use
  Company Number: US-009507513-1311USA012259

PATIENT
  Sex: Female

DRUGS (3)
  1. BOCEPREVIR [Suspect]
     Indication: CHRONIC HEPATITIS C
     Dosage: UNK
     Route: 048
     Dates: start: 20131011
  2. PEGASYS [Suspect]
     Indication: CHRONIC HEPATITIS C
     Dosage: 180 MICROGRAM, ONCE A WEEK, INJECTIONS EVERY FRIDAY EVENINGS
     Route: 058
     Dates: start: 20130913
  3. COPEGUS [Suspect]
     Indication: CHRONIC HEPATITIS C
     Dosage: 1000 MG DAILY IN DIVIDED DOSES
     Route: 048
     Dates: start: 20130913

REACTIONS (13)
  - Emotional disorder [Unknown]
  - Influenza like illness [Unknown]
  - Gastric disorder [Unknown]
  - Dysgeusia [Unknown]
  - Sleep disorder [Unknown]
  - Depression [Recovering/Resolving]
  - Weight decreased [Recovered/Resolved]
  - Decreased appetite [Unknown]
  - Rash pruritic [Unknown]
  - Fatigue [Unknown]
  - Metrorrhagia [Unknown]
  - Fatigue [Unknown]
  - Injection site dryness [Unknown]
